FAERS Safety Report 9714051 (Version 1)
Quarter: 2013Q4

REPORT INFORMATION
  Report Type: Spontaneous
  Country: US (occurrence: US)
  Receive Date: 20131126
  Receipt Date: 20131126
  Transmission Date: 20140711
  Serious: No
  Sender: FDA-Public Use
  Company Number: US-GILEAD-2008-0018777

PATIENT
  Age: 78 Year
  Sex: Female
  Weight: 55.34 kg

DRUGS (4)
  1. LETAIRIS [Suspect]
     Indication: PULMONARY ARTERIAL HYPERTENSION
     Route: 048
     Dates: start: 20080407, end: 20080409
  2. LETAIRIS [Suspect]
     Dates: start: 200802
  3. NITROGLYCERIN [Concomitant]
     Indication: OESOPHAGEAL SPASM
  4. COUMADIN [Concomitant]
     Indication: PULMONARY EMBOLISM

REACTIONS (1)
  - Vulvovaginal burning sensation [Recovered/Resolved]
